FAERS Safety Report 8167964-4 (Version None)
Quarter: 2012Q1

REPORT INFORMATION
  Report Type: 
  Country: None (occurrence: None)
  Receive Date: 20120103
  Receipt Date: 20111105
  Transmission Date: 20120608
  Serious: No
  Sender: FDA-Public Use
  Company Number: AE-2011-003120

PATIENT
  Age: 54 Year
  Sex: Female

DRUGS (6)
  1. INCIVEK [Suspect]
     Dosage: 2250 MG (750 MG,3 IN 1 D),ORAL
     Route: 048
     Dates: start: 20111021
  2. PEGASYS [Concomitant]
  3. HYDROXYZINE [Concomitant]
  4. RIBAVIRN (RIBAVIRIN) [Concomitant]
  5. IBUPROFEN (ADVIL) [Concomitant]
  6. BLOOD PRESSURE MEDICATION (ANTIHYPERTENSIVES) [Concomitant]

REACTIONS (1)
  - RASH [None]
